FAERS Safety Report 9097927 (Version 2)
Quarter: 2013Q1

REPORT INFORMATION
  Report Type: Spontaneous
  Country: US (occurrence: US)
  Receive Date: 20130212
  Receipt Date: 20130304
  Transmission Date: 20140127
  Serious: No
  Sender: FDA-Public Use
  Company Number: US-PFIZER INC-2013051421

PATIENT
  Sex: Female

DRUGS (1)
  1. PREMPRO [Suspect]
     Dosage: 0.425 MG, 1X/DAY
     Route: 048
     Dates: end: 20130201

REACTIONS (2)
  - Hypersensitivity [Unknown]
  - Headache [Unknown]
